FAERS Safety Report 7305830-4 (Version None)
Quarter: 2011Q1

REPORT INFORMATION
  Report Type: 
  Country: None (occurrence: None)
  Receive Date: 20110222
  Receipt Date: 20110215
  Transmission Date: 20110831
  Serious: Yes (Other)
  Sender: FDA-Public Use
  Company Number: US-PFIZER INC-2010140951

PATIENT
  Sex: Female

DRUGS (1)
  1. CHANTIX [Suspect]
     Dosage: UNK

REACTIONS (5)
  - RASH [None]
  - LOSS OF CONSCIOUSNESS [None]
  - INSOMNIA [None]
  - HYPERSENSITIVITY [None]
  - THINKING ABNORMAL [None]
